FAERS Safety Report 19112206 (Version 2)
Quarter: 2021Q4

REPORT INFORMATION
  Report Type: Spontaneous
  Country: US (occurrence: None)
  Receive Date: 20210409
  Receipt Date: 20211125
  Transmission Date: 20220303
  Serious: Yes (Disabling, Other)
  Sender: FDA-Public Use
  Company Number: 2021A266429

PATIENT
  Age: 59 Year
  Sex: Female
  Weight: 85.3 kg

DRUGS (26)
  1. NEXIUM [Suspect]
     Active Substance: ESOMEPRAZOLE MAGNESIUM
     Indication: Gastrooesophageal reflux disease
     Route: 048
     Dates: start: 2003, end: 2019
  2. NEXIUM [Suspect]
     Active Substance: ESOMEPRAZOLE MAGNESIUM
     Indication: Gastrooesophageal reflux disease
     Dosage: GENERIC
     Route: 065
  3. PRILOSEC [Suspect]
     Active Substance: OMEPRAZOLE MAGNESIUM
     Indication: Gastrooesophageal reflux disease
     Route: 048
     Dates: start: 2003, end: 2019
  4. NEXIUM 24HR [Suspect]
     Active Substance: ESOMEPRAZOLE MAGNESIUM
     Indication: Gastrooesophageal reflux disease
     Dosage: RECOMENDED DOSE
     Route: 048
     Dates: start: 2014, end: 2019
  5. FUROSEMIDE [Concomitant]
     Active Substance: FUROSEMIDE
     Indication: Oedema
  6. LOSARTAN [Concomitant]
     Active Substance: LOSARTAN
     Indication: Blood pressure abnormal
  7. ATORVASTATIN [Concomitant]
     Active Substance: ATORVASTATIN
     Indication: Blood cholesterol abnormal
  8. TYLENOL [Concomitant]
     Active Substance: ACETAMINOPHEN
     Indication: Pain
  9. VITAMINS [Concomitant]
     Active Substance: VITAMINS
  10. RANITIDINE [Concomitant]
     Active Substance: RANITIDINE
  11. TUMS [Concomitant]
     Active Substance: CALCIUM CARBONATE
  12. MONTELUKAST [Concomitant]
     Active Substance: MONTELUKAST SODIUM
  13. DICLOFENAC SODIUM [Concomitant]
     Active Substance: DICLOFENAC SODIUM
  14. ATENOLOL [Concomitant]
     Active Substance: ATENOLOL
  15. VALSARTAN [Concomitant]
     Active Substance: VALSARTAN
  16. FLUCONAZOLE [Concomitant]
     Active Substance: FLUCONAZOLE
  17. AZITHROMYCIN [Concomitant]
     Active Substance: AZITHROMYCIN
  18. PROAIR HFA [Concomitant]
     Active Substance: ALBUTEROL SULFATE
  19. NIZORAL [Concomitant]
     Active Substance: KETOCONAZOLE
  20. ZOVIRAX [Concomitant]
     Active Substance: ACYCLOVIR
  21. XALATAN [Concomitant]
     Active Substance: LATANOPROST
  22. PROCARDIA [Concomitant]
     Active Substance: NIFEDIPINE
  23. VITAMIN D [Concomitant]
     Active Substance: VITAMIN D NOS
  24. COLACE [Concomitant]
     Active Substance: DOCUSATE SODIUM
  25. ZOFRAN [Concomitant]
     Active Substance: ONDANSETRON HYDROCHLORIDE
  26. ALBUTEROL [Concomitant]
     Active Substance: ALBUTEROL

REACTIONS (3)
  - Chronic kidney disease [Not Recovered/Not Resolved]
  - End stage renal disease [Unknown]
  - Gastrooesophageal reflux disease [Not Recovered/Not Resolved]

NARRATIVE: CASE EVENT DATE: 20180101
